FAERS Safety Report 13982660 (Version 1)
Quarter: 2017Q3

REPORT INFORMATION
  Report Type: Not Available
  Country: CA (occurrence: CA)
  Receive Date: 20170918
  Receipt Date: 20170918
  Transmission Date: 20171128
  Serious: Yes (Hospitalization)
  Sender: FDA-Public Use
  Company Number: CA-ANIPHARMA-2017-CA-000451

PATIENT
  Age: 39 Year
  Sex: Male

DRUGS (1)
  1. PHENYTOIN SODIUM (NON-SPECIFIC) [Suspect]
     Active Substance: PHENYTOIN SODIUM
     Route: 065

REACTIONS (6)
  - Hypogonadism [Recovered/Resolved]
  - Hypothyroidism [Recovered/Resolved]
  - Ataxia [Unknown]
  - Adrenal insufficiency [Recovered/Resolved]
  - Toxicity to various agents [Unknown]
  - Thyroid function test abnormal [Recovered/Resolved]
